FAERS Safety Report 23828513 (Version 7)
Quarter: 2024Q4

REPORT INFORMATION
  Report Type: Report from Study
  Country: JP (occurrence: JP)
  Receive Date: 20240508
  Receipt Date: 20241003
  Transmission Date: 20250114
  Serious: Yes (Hospitalization)
  Sender: NOVARTIS
  Company Number: JP-002147023-NVSJ2024JP005306

PATIENT
  Age: 83 Year
  Sex: Female
  Weight: 42 kg

DRUGS (3)
  1. ENTRESTO [Suspect]
     Active Substance: SACUBITRIL\VALSARTAN
     Indication: Hypertension
     Dosage: 200 MG
     Route: 048
     Dates: start: 20240423, end: 20240501
  2. AMLODIPINE BESYLATE\IRBESARTAN [Suspect]
     Active Substance: AMLODIPINE BESYLATE\IRBESARTAN
     Indication: Hypertension
     Dosage: UNK
     Route: 048
     Dates: end: 20240502
  3. VONOPRAZAN FUMARATE [Concomitant]
     Active Substance: VONOPRAZAN FUMARATE
     Indication: Product used for unknown indication
     Dosage: UNK
     Route: 065

REACTIONS (8)
  - Varicose vein [Unknown]
  - Venous thrombosis [Unknown]
  - Oedema peripheral [Not Recovered/Not Resolved]
  - Anaemia [Unknown]
  - Hypokalaemia [Recovered/Resolved]
  - Tachycardia [Recovered/Resolved]
  - Decreased appetite [Recovered/Resolved]
  - Insomnia [Recovered/Resolved]

NARRATIVE: CASE EVENT DATE: 20240502
